FAERS Safety Report 11421001 (Version 1)
Quarter: 2015Q3

REPORT INFORMATION
  Report Type: Spontaneous
  Country: US (occurrence: US)
  Receive Date: 20150826
  Receipt Date: 20150826
  Transmission Date: 20151125
  Serious: Yes (Death, Hospitalization)
  Sender: FDA-Public Use
  Company Number: US-PERRIGO-15US008689

PATIENT
  Age: 34 Year
  Sex: Male
  Weight: 82.86 kg

DRUGS (2)
  1. POLYETHYLENE GLYCOL 3350 17G 306 [Suspect]
     Active Substance: POLYETHYLENE GLYCOLS
     Indication: CONSTIPATION
     Dosage: UNKNOWN, SINGLE
     Route: 048
     Dates: start: 201506, end: 201506
  2. ANTIHYPERTENSIVES [Concomitant]
     Active Substance: UNSPECIFIED INGREDIENT
     Indication: HYPERTENSION
     Dosage: UNK
     Route: 065

REACTIONS (7)
  - Pain [Unknown]
  - Diarrhoea [Unknown]
  - Anaemia [Unknown]
  - Rectal haemorrhage [Unknown]
  - Pallor [Unknown]
  - Inflammatory bowel disease [Fatal]
  - Pyrexia [Unknown]

NARRATIVE: CASE EVENT DATE: 201506
